FAERS Safety Report 10441353 (Version 1)
Quarter: 2014Q3

REPORT INFORMATION
  Report Type: Spontaneous
  Country: GB (occurrence: GB)
  Receive Date: 20140909
  Receipt Date: 20140909
  Transmission Date: 20150326
  Serious: Yes (Other)
  Sender: FDA-Public Use
  Company Number: GB-WATSON-2014-19396

PATIENT
  Sex: Female

DRUGS (1)
  1. GALANTAMINE (UNKNOWN) [Suspect]
     Active Substance: GALANTAMINE
     Indication: MEMORY IMPAIRMENT
     Dosage: 8 MG, BID
     Route: 048
     Dates: start: 20140710, end: 20140809

REACTIONS (2)
  - Nightmare [Recovering/Resolving]
  - Depressed mood [Recovering/Resolving]

NARRATIVE: CASE EVENT DATE: 20140712
